FAERS Safety Report 8916780 (Version 1)
Quarter: 2012Q4

REPORT INFORMATION
  Report Type: 
  Country: CH (occurrence: CH)
  Receive Date: 20121120
  Receipt Date: 20121120
  Transmission Date: 20130627
  Serious: Yes (Life-Threatening, Hospitalization, Other)
  Sender: FDA-Public Use
  Company Number: CH-009507513-1211CHE006705

PATIENT
  Age: 86 Year
  Sex: Female

DRUGS (2)
  1. INVANZ [Suspect]
     Indication: SEPSIS
     Dosage: 1/2 per day
     Route: 042
     Dates: start: 20121001
  2. INSULIN [Concomitant]
     Indication: TYPE 2 DIABETES MELLITUS

REACTIONS (6)
  - Grand mal convulsion [Recovered/Resolved]
  - Hemiplegia [Recovering/Resolving]
  - Coma [Unknown]
  - Cerebrovascular accident [Unknown]
  - Somnolence [Unknown]
  - Confusional state [Not Recovered/Not Resolved]
